FAERS Safety Report 24996168 (Version 2)
Quarter: 2025Q2

REPORT INFORMATION
  Report Type: Spontaneous
  Country: DE (occurrence: DE)
  Receive Date: 20250221
  Receipt Date: 20250520
  Transmission Date: 20250717
  Serious: Yes (Other)
  Sender: TEVA
  Company Number: DE-TEVA-VS-3201161

PATIENT
  Age: 50 Year
  Sex: Male
  Weight: 100 kg

DRUGS (9)
  1. ARIPIPRAZOLE [Suspect]
     Active Substance: ARIPIPRAZOLE
     Indication: Schizophrenia
     Dosage: 7.5MG IN MORNING
     Route: 048
     Dates: start: 201806
  2. ARIPIPRAZOLE [Suspect]
     Active Substance: ARIPIPRAZOLE
     Indication: Schizophrenia
     Dosage: IN THE MORNING
     Route: 065
     Dates: start: 20240724
  3. ARIPIPRAZOLE [Suspect]
     Active Substance: ARIPIPRAZOLE
     Indication: Schizophrenia
     Route: 048
  4. SERTRALINE [Concomitant]
     Active Substance: SERTRALINE HYDROCHLORIDE
     Indication: Product used for unknown indication
     Route: 065
     Dates: start: 20240731
  5. SERTRALINE [Concomitant]
     Active Substance: SERTRALINE HYDROCHLORIDE
     Indication: Product used for unknown indication
     Dosage: (1-0-0-0)
  6. FOSTER [Concomitant]
     Active Substance: BECLOMETHASONE\FORMOTEROL
     Indication: Product used for unknown indication
     Route: 065
  7. SALBUHEXAL [Concomitant]
     Active Substance: ALBUTEROL
     Indication: Product used for unknown indication
     Dates: start: 20240731
  8. OMEPRAZOLE [Concomitant]
     Active Substance: OMEPRAZOLE
     Indication: Product used for unknown indication
     Dates: start: 20240731
  9. CHOLECALCIFEROL [Concomitant]
     Active Substance: CHOLECALCIFEROL
     Indication: Product used for unknown indication

REACTIONS (19)
  - Erectile dysfunction [Unknown]
  - Dizziness [Unknown]
  - Visual field defect [Not Recovered/Not Resolved]
  - Bradyphrenia [Unknown]
  - Fatigue [Not Recovered/Not Resolved]
  - Condition aggravated [Unknown]
  - Somnolence [Unknown]
  - Respiration abnormal [Unknown]
  - Disturbance in attention [Unknown]
  - Hunger [Unknown]
  - Memory impairment [Unknown]
  - Sleep disorder [Unknown]
  - Hyperphagia [Unknown]
  - Overweight [Unknown]
  - Restlessness [Recovering/Resolving]
  - Somnolence [Unknown]
  - Feeling abnormal [Unknown]
  - Impaired driving ability [Unknown]
  - Apathy [Unknown]

NARRATIVE: CASE EVENT DATE: 20180101
